FAERS Safety Report 5927717-1 (Version None)
Quarter: 2008Q4

REPORT INFORMATION
  Report Type: 
  Country: None (occurrence: None)
  Receive Date: 20081020
  Receipt Date: 20081010
  Transmission Date: 20090506
  Serious: Yes (Death, Hospitalization)
  Sender: FDA-Public Use
  Company Number: 2008US002724

PATIENT
  Age: 61 Year
  Sex: Female
  Weight: 48.1 kg

DRUGS (13)
  1. PROGRAF [Suspect]
     Indication: LUNG TRANSPLANT
     Dosage: 0.5, BID, ORAL
     Route: 048
     Dates: start: 20080926, end: 20081005
  2. PROGRAF [Suspect]
     Indication: LUNG TRANSPLANT
     Dosage: 0.5, BID, ORAL
     Route: 048
     Dates: start: 20060125
  3. RAPAMYCIN (SIROLIMUS) [Concomitant]
  4. PREDNISONE TAB [Concomitant]
  5. NEXIUM (ESOMEPRAZOLE SODIUM) [Concomitant]
  6. VALCYTE [Concomitant]
  7. VORICONAZOLE (VORICONAZOLE) [Concomitant]
  8. MULTIVITAMIN (ASCORBIC ACID) [Concomitant]
  9. ALENDRONATE SODIUM [Concomitant]
  10. ARANESP [Concomitant]
  11. XOPENEX [Concomitant]
  12. LANTUS [Concomitant]
  13. MUCOMYST (ACETYLCYSTEINE SODIUM) [Concomitant]

REACTIONS (11)
  - BACTERIAL INFECTION [None]
  - BLOOD CULTURE POSITIVE [None]
  - CARDIAC ARREST [None]
  - CULTURE URINE POSITIVE [None]
  - ESCHERICHIA INFECTION [None]
  - LACTIC ACIDOSIS [None]
  - LOSS OF CONSCIOUSNESS [None]
  - RENAL FAILURE ACUTE [None]
  - RESPIRATORY FAILURE [None]
  - SEPTIC SHOCK [None]
  - UNRESPONSIVE TO STIMULI [None]
